FAERS Safety Report 8395436-0 (Version None)
Quarter: 2012Q1

REPORT INFORMATION
  Report Type: 
  Country: None (occurrence: None)
  Receive Date: 20120323
  Receipt Date: 20110228
  Transmission Date: 20120608
  Serious: Yes (Other)
  Sender: FDA-Public Use
  Company Number: 163-21880-11030292

PATIENT
  Age: 45 Year
  Sex: Male
  Weight: 67.1324 kg

DRUGS (10)
  1. MAGNESIUM SULFATE [Concomitant]
  2. MORPHINE SULFATE [Concomitant]
  3. REVLIMID [Suspect]
     Indication: MULTIPLE MYELOMA
     Dosage: 10 MG, 1 IN 1 D, PO, 25 MG, 1 IN 1 D, PO, 15 MG, 1 IN 1 D, PO
     Route: 048
     Dates: start: 20100601
  4. REVLIMID [Suspect]
     Indication: MULTIPLE MYELOMA
     Dosage: 10 MG, 1 IN 1 D, PO, 25 MG, 1 IN 1 D, PO, 15 MG, 1 IN 1 D, PO
     Route: 048
     Dates: start: 20110105
  5. REVLIMID [Suspect]
     Indication: MULTIPLE MYELOMA
     Dosage: 10 MG, 1 IN 1 D, PO, 25 MG, 1 IN 1 D, PO, 15 MG, 1 IN 1 D, PO
     Route: 048
     Dates: start: 20100501
  6. LEVOTHYROXINE (LEVOTHYROXINE) (TABLETS) [Concomitant]
  7. CYMBALTA [Concomitant]
  8. ACYCLOVIR [Concomitant]
  9. ATIVAN [Concomitant]
  10. ZOLPIDEM TARTRATE [Concomitant]

REACTIONS (1)
  - CHEST PAIN [None]
